FAERS Safety Report 5475334-2 (Version None)
Quarter: 2007Q4

REPORT INFORMATION
  Report Type: 
  Country: None (occurrence: None)
  Receive Date: 20071001
  Receipt Date: 20070905
  Transmission Date: 20080405
  Serious: Yes (Other)
  Sender: FDA-Public Use
  Company Number: CHPA2007US08525

PATIENT
  Sex: Female
  Weight: 59 kg

DRUGS (2)
  1. BENEFIBER W/ WHEAT DEXTRIN (NCH)(WHEAT DEXTRIN) POWDER [Suspect]
     Indication: DIVERTICULITIS
     Dosage: 1.5 TSP, QD FOR 2 MONTHS, ORAL
     Route: 048
     Dates: start: 20070701
  2. VITAMINS (NO INGREDIENTS/SUBSTANCES) [Concomitant]

REACTIONS (2)
  - BLISTER [None]
  - BREATH ODOUR [None]
